FAERS Safety Report 5136327-8 (Version None)
Quarter: 2006Q4

REPORT INFORMATION
  Report Type: 
  Country: None (occurrence: None)
  Receive Date: 20061027
  Receipt Date: 20061023
  Transmission Date: 20070319
  Serious: Yes (Other)
  Sender: FDA-Public Use
  Company Number: AU-GLAXOSMITHKLINE-B0444048A

PATIENT
  Age: 30 Year
  Sex: Female

DRUGS (4)
  1. LAMOTRIGINE [Suspect]
     Dosage: 50MG SEE DOSAGE TEXT
     Route: 065
     Dates: start: 20060601
  2. UNKNOWN DRUG [Concomitant]
     Route: 065
  3. EPILIM [Concomitant]
     Route: 065
  4. EFFEXOR [Concomitant]
     Route: 065

REACTIONS (1)
  - ELECTROCARDIOGRAM QT PROLONGED [None]
